FAERS Safety Report 24340842 (Version 10)
Quarter: 2025Q3

REPORT INFORMATION
  Report Type: Report from Study
  Country: US (occurrence: US)
  Receive Date: 20240919
  Receipt Date: 20250829
  Transmission Date: 20251021
  Serious: Yes (Other)
  Sender: SUNOVION
  Company Number: US-SUMITOMO PHARMA SWITZERLAND GMBH-2024SPA001967

PATIENT
  Age: 68 Year
  Sex: Male

DRUGS (4)
  1. ORGOVYX [Suspect]
     Active Substance: RELUGOLIX
     Indication: Prostate cancer
     Route: 048
     Dates: start: 20240822, end: 20240822
  2. ORGOVYX [Suspect]
     Active Substance: RELUGOLIX
     Dosage: 120 MG, QD
     Route: 048
     Dates: start: 20240823
  3. CIALIS [Concomitant]
     Active Substance: TADALAFIL
  4. MIRABEGRON [Concomitant]
     Active Substance: MIRABEGRON

REACTIONS (17)
  - Endodontic procedure [Unknown]
  - Tooth fracture [Unknown]
  - Bone loss [Unknown]
  - Sexual dysfunction [Unknown]
  - Disturbance in sexual arousal [Unknown]
  - Pain [Unknown]
  - Arthropathy [Unknown]
  - Mobility decreased [Unknown]
  - Inflammation [Unknown]
  - Joint effusion [Unknown]
  - Somnolence [Unknown]
  - Nausea [Unknown]
  - Arthralgia [Unknown]
  - Libido decreased [Unknown]
  - Fatigue [Unknown]
  - Bone pain [Unknown]
  - Hot flush [Unknown]
